FAERS Safety Report 8596368-5 (Version None)
Quarter: 2012Q3

REPORT INFORMATION
  Report Type: 
  Country: None (occurrence: None)
  Receive Date: 20120815
  Receipt Date: 20120808
  Transmission Date: 20120928
  Serious: Yes (Other)
  Sender: FDA-Public Use
  Company Number: US-BAYER-2012-081896

PATIENT
  Age: 19 Year
  Sex: Male
  Weight: 54.875 kg

DRUGS (2)
  1. GENERIC HEARTBURN PILLS [Concomitant]
  2. ALKA-SELTZER ORIGINAL [Suspect]
     Indication: ABDOMINAL PAIN
     Dosage: 1 DF, UNK
     Route: 048

REACTIONS (3)
  - HAEMATOCHEZIA [None]
  - HAEMATEMESIS [None]
  - HEADACHE [None]
